FAERS Safety Report 8852344 (Version 1)
Quarter: 2012Q4

REPORT INFORMATION
  Report Type: Spontaneous
  Country: GB (occurrence: None)
  Receive Date: 20121017
  Receipt Date: 20121017
  Transmission Date: 20130627
  Serious: Yes (Other)
  Sender: FDA-Public Use
  Company Number: GB-DEXPHARM-20121338

PATIENT
  Age: 33 Year
  Sex: Female
  Weight: 41 kg

DRUGS (4)
  1. OMEPRAZOLE [Suspect]
     Indication: NOSE BLEED
     Dates: start: 20120627
  2. CETIRIZINE [Concomitant]
  3. HYDROCORITISONE [Concomitant]
  4. RANITIDIINE [Concomitant]

REACTIONS (1)
  - Epistaxis [None]
